FAERS Safety Report 7973128 (Version 6)
Quarter: 2012Q4

REPORT INFORMATION
  Report Type: Report from Study
  Country: IN (occurrence: US)
  Receive Date: 20110603
  Receipt Date: 20120927
  Transmission Date: 20130627
  Serious: Yes (Death, Hospitalization)
  Sender: FDA-Public Use
  Company Number: US-BRISTOL-MYERS SQUIBB COMPANY-15796832

PATIENT
  Age: 31 Year
  Sex: Male

DRUGS (5)
  1. IPILIMUMAB [Suspect]
     Indication: MALIGNANT MELANOMA
     Dosage: discontinued on 01-Jun-2011.
     Route: 042
     Dates: start: 20110409, end: 20110511
  2. CALCIUM CHLORIDE [Concomitant]
     Route: 042
     Dates: start: 20110621, end: 20110621
  3. HYDROCORTISONE [Concomitant]
     Route: 042
     Dates: start: 20110621, end: 20110628
  4. POTASSIUM PHOSPHATE [Concomitant]
     Dates: start: 20110621, end: 20110628
  5. MAGNESIUM SULFATE [Concomitant]
     Dates: start: 20110621, end: 20110628

REACTIONS (3)
  - Ileal perforation [Fatal]
  - Sepsis [Fatal]
  - Enterocolitis [Recovered/Resolved with Sequelae]
